FAERS Safety Report 6152886-0 (Version None)
Quarter: 2009Q2

REPORT INFORMATION
  Report Type: 
  Country: None (occurrence: None)
  Receive Date: 20090413
  Receipt Date: 20090403
  Transmission Date: 20091009
  Serious: Yes (Other)
  Sender: FDA-Public Use
  Company Number: PHHY2009JP09017

PATIENT
  Sex: Male

DRUGS (5)
  1. DIOVAN [Suspect]
     Indication: HYPERTENSION
     Dosage: 80 MG, QD
     Route: 048
     Dates: end: 20090331
  2. DIOVAN [Suspect]
     Dosage: 80 MG, QD
     Route: 048
     Dates: end: 20090301
  3. DIOVAN [Suspect]
     Dosage: 80 MG, QD
     Route: 048
     Dates: end: 20090307
  4. ETHYL ICOSAPENTATE [Concomitant]
     Dosage: UNK
     Route: 048
  5. MUCOSOLVAN [Concomitant]
     Dosage: UNK
     Route: 048

REACTIONS (2)
  - NASOPHARYNGITIS [None]
  - VENTRICULAR EXTRASYSTOLES [None]
